FAERS Safety Report 25137895 (Version 1)
Quarter: 2025Q1

REPORT INFORMATION
  Report Type: Spontaneous
  Country: JP (occurrence: JP)
  Receive Date: 20250329
  Receipt Date: 20250329
  Transmission Date: 20250408
  Serious: Yes (Hospitalization)
  Sender: JOHNSON AND JOHNSON
  Company Number: JP-JNJFOC-20250362687

PATIENT

DRUGS (1)
  1. MIGLUSTAT [Suspect]
     Active Substance: MIGLUSTAT
     Indication: Product used for unknown indication
     Route: 048

REACTIONS (1)
  - Hospitalisation [Unknown]
